FAERS Safety Report 16709409 (Version 11)
Quarter: 2020Q3

REPORT INFORMATION
  Report Type: Report from Study
  Country: US (occurrence: US)
  Receive Date: 20190816
  Receipt Date: 20200929
  Transmission Date: 20201102
  Serious: Yes (Hospitalization)
  Sender: FDA-Public Use
  Company Number: PHEH2019US033966

PATIENT
  Sex: Female
  Weight: 70.3 kg

DRUGS (8)
  1. OPSUMIT [Concomitant]
     Active Substance: MACITENTAN
     Indication: PULMONARY ARTERIAL HYPERTENSION
     Dosage: UNK
     Route: 065
  2. TREPROSTINIL. [Suspect]
     Active Substance: TREPROSTINIL
     Indication: PULMONARY ARTERIAL HYPERTENSION
     Dosage: 100 OT (100 NG/KG/MIN, 115 NG/KG/MIN, 119 NG/KG/MIN), CONTINUOUS
     Route: 042
     Dates: start: 20190716
  3. ADCIRCA [Concomitant]
     Active Substance: TADALAFIL
     Indication: PULMONARY ARTERIAL HYPERTENSION
     Dosage: UNK
     Route: 065
  4. TREPROSTINIL. [Suspect]
     Active Substance: TREPROSTINIL
     Dosage: 115 OT (115 NG/KG/MIN), CONTINUOUS)
     Route: 042
  5. TREPROSTINIL. [Suspect]
     Active Substance: TREPROSTINIL
     Dosage: 119 OT (119 NG/KG/MIN), CONTINUOUS)
     Route: 042
  6. TADALAFIL. [Concomitant]
     Active Substance: TADALAFIL
     Indication: PRODUCT USED FOR UNKNOWN INDICATION
     Dosage: UNK
     Route: 065
  7. GABAPENTIN. [Concomitant]
     Active Substance: GABAPENTIN
     Indication: PRODUCT USED FOR UNKNOWN INDICATION
     Dosage: UNK
     Route: 065
  8. TREPROSTINIL. [Suspect]
     Active Substance: TREPROSTINIL
     Dosage: 126 OT (126 NG/KG/MIN), CONTINUOUS)
     Route: 042
     Dates: start: 20190716

REACTIONS (23)
  - Heart rate decreased [Unknown]
  - Infusion site urticaria [Unknown]
  - Hypotension [Unknown]
  - Irritable bowel syndrome [Unknown]
  - Back pain [Unknown]
  - Malaise [Unknown]
  - Abdominal discomfort [Unknown]
  - Diarrhoea [Unknown]
  - Decreased appetite [Unknown]
  - Pain [Unknown]
  - Pneumonia [Not Recovered/Not Resolved]
  - Urticaria [Unknown]
  - Joint swelling [Unknown]
  - Lower respiratory tract infection [Unknown]
  - Nasal congestion [Unknown]
  - Nausea [Unknown]
  - Headache [Recovered/Resolved]
  - Weight decreased [Unknown]
  - Nasopharyngitis [Unknown]
  - Feeding disorder [Unknown]
  - Rash [Recovered/Resolved]
  - Pruritus [Unknown]
  - Anaemia [Unknown]
